FAERS Safety Report 4598034-X (Version None)
Quarter: 2005Q2

REPORT INFORMATION
  Report Type: 
  Country: None (occurrence: None)
  Receive Date: 20050207
  Receipt Date: 20040123
  Transmission Date: 20051028
  Serious: Yes (Hospitalization)
  Sender: FDA-Public Use
  Company Number: MEDI-0001428

PATIENT
  Age: 64 Year
  Sex: Male
  Weight: 97.7955 kg

DRUGS (10)
  1. ETHYOL [Suspect]
     Indication: RADIOTHERAPY
     Dosage: 500 MG, SUBCUTANEOUS
     Route: 058
     Dates: start: 20031201, end: 20040101
  2. PIOGLITAZONE HCL [Concomitant]
  3. ALLOPURINOL [Concomitant]
  4. AMARYL [Concomitant]
  5. LISINOPRIL [Concomitant]
  6. LIPITOR [Concomitant]
  7. PROCRIT (ERYTHOROPOIETIN) [Concomitant]
  8. ASPIRIN [Concomitant]
  9. LASIX [Concomitant]
  10. RADIATION THERAPY [Concomitant]

REACTIONS (6)
  - BLOOD CREATININE INCREASED [None]
  - BLOOD UREA DECREASED [None]
  - DEHYDRATION [None]
  - PYREXIA [None]
  - RENAL FAILURE ACUTE [None]
  - TOXIC EPIDERMAL NECROLYSIS [None]
